FAERS Safety Report 7258642-4 (Version None)
Quarter: 2011Q1

REPORT INFORMATION
  Report Type: 
  Country: None (occurrence: None)
  Receive Date: 20110129
  Receipt Date: 20100625
  Transmission Date: 20110831
  Serious: No
  Sender: FDA-Public Use
  Company Number: US-ABBOTT-09P-163-0608349-00

PATIENT
  Sex: Female
  Weight: 79.45 kg

DRUGS (11)
  1. HUMIRA [Suspect]
     Indication: RHEUMATOID ARTHRITIS
     Route: 058
     Dates: end: 20090101
  2. PREDNISONE [Concomitant]
     Indication: PRODUCT USED FOR UNKNOWN INDICATION
  3. HUMIRA [Suspect]
     Indication: RHEUMATOID ARTHRITIS
     Route: 058
  4. HUMIRA [Suspect]
     Route: 058
     Dates: start: 20090101
  5. XANAX [Concomitant]
     Indication: SLEEP DISORDER THERAPY
     Dosage: 1 IN 1 DAY AT BEDTIME
  6. ARAVA [Concomitant]
     Indication: RHEUMATOID ARTHRITIS
  7. DARVOCET-N 100 [Concomitant]
     Indication: PAIN
  8. UNKNOWN BLOOD PRESSURE MEDICATION [Concomitant]
     Indication: HYPERTENSION
  9. FOLIC ACID [Concomitant]
     Indication: PRODUCT USED FOR UNKNOWN INDICATION
  10. ALPRAZOLAM [Concomitant]
     Indication: INSOMNIA
  11. ATENOLOL [Concomitant]
     Indication: HYPERTENSION
     Dosage: 50/25MG

REACTIONS (10)
  - PRURITUS [None]
  - EYE DISCHARGE [None]
  - BLISTER [None]
  - PARAESTHESIA [None]
  - SKIN DISCOLOURATION [None]
  - ARTHRALGIA [None]
  - RASH [None]
  - SKIN ULCER [None]
  - EYE INFLAMMATION [None]
  - ERYTHEMA NODOSUM [None]
